FAERS Safety Report 4562217-5 (Version None)
Quarter: 2005Q1

REPORT INFORMATION
  Report Type: 
  Country: None (occurrence: None)
  Receive Date: 20050121
  Receipt Date: 20050110
  Transmission Date: 20050727
  Serious: Yes (Death)
  Sender: FDA-Public Use
  Company Number: 2005-BP-00340BP

PATIENT
  Sex: Male

DRUGS (2)
  1. FLOMAX [Suspect]
     Indication: BENIGN PROSTATIC HYPERPLASIA
     Dosage: 0.8 MG (0.8 MG), PO
     Route: 048
     Dates: start: 20040101, end: 20041217
  2. ACETYLSALICYLIC ACID SRT [Concomitant]

REACTIONS (5)
  - DRUG INEFFECTIVE [None]
  - DYSPEPSIA [None]
  - MYOCARDIAL INFARCTION [None]
  - NECK PAIN [None]
  - THROMBOSIS [None]
